FAERS Safety Report 15688993 (Version 1)
Quarter: 2018Q4

REPORT INFORMATION
  Report Type: Spontaneous
  Country: US (occurrence: US)
  Receive Date: 20181204
  Receipt Date: 20181204
  Transmission Date: 20190205
  Serious: No
  Sender: FDA-Public Use
  Company Number: None

PATIENT
  Age: 64 Year
  Sex: Male
  Weight: 68.4 kg

DRUGS (3)
  1. TADALAFIL TAB 5 MG [Suspect]
     Active Substance: TADALAFIL
     Indication: BENIGN PROSTATIC HYPERPLASIA
     Dosage: ?          QUANTITY:1 TABLET(S);?
     Route: 048
     Dates: start: 20181128, end: 20181129
  2. RAPAFLO [Concomitant]
     Active Substance: SILODOSIN
  3. CIALIS [Concomitant]
     Active Substance: TADALAFIL

REACTIONS (4)
  - Product substitution issue [None]
  - Dyspnoea [None]
  - Tongue disorder [None]
  - Dysphagia [None]

NARRATIVE: CASE EVENT DATE: 20181129
